FAERS Safety Report 11873266 (Version 2)
Quarter: 2015Q4

REPORT INFORMATION
  Report Type: Spontaneous
  Country: BR (occurrence: BR)
  Receive Date: 20151228
  Receipt Date: 20151231
  Transmission Date: 20160305
  Serious: Yes (Other)
  Sender: FDA-Public Use
  Company Number: BR-PFIZER INC-2015006518

PATIENT
  Age: 70 Year
  Sex: Female

DRUGS (7)
  1. DECONGEX PLUS [Suspect]
     Active Substance: BROMPHENIRAMINE MALEATE\PHENYLEPHRINE HYDROCHLORIDE
     Indication: HEADACHE
     Dosage: UNK
     Dates: start: 2015
  2. ATENOLOL. [Suspect]
     Active Substance: ATENOLOL
     Indication: ATRIAL FIBRILLATION
     Dosage: UNK
     Dates: start: 2015
  3. FRONTAL [Suspect]
     Active Substance: ALPRAZOLAM
     Indication: SLEEP DISORDER THERAPY
     Dosage: 0.25 MG, DAILY
     Dates: start: 2010
  4. ATENOLOL. [Suspect]
     Active Substance: ATENOLOL
     Indication: ARRHYTHMIA
  5. FRONTAL [Suspect]
     Active Substance: ALPRAZOLAM
     Indication: ANXIETY
     Dosage: 0.25 MG (HALF TABLET OF 0.25 MG AT NIGHT AND HALF TABLET OF 0.25MG IN THE MORNING), AS NEEDED
     Route: 048
     Dates: start: 2010
  6. SELOZOK [Suspect]
     Active Substance: METOPROLOL SUCCINATE
     Indication: ATRIAL FIBRILLATION
     Dosage: UNK
     Dates: start: 2015
  7. SELOZOK [Suspect]
     Active Substance: METOPROLOL SUCCINATE
     Indication: ARRHYTHMIA

REACTIONS (15)
  - Gastrointestinal ulcer [Recovered/Resolved]
  - Pain [Recovered/Resolved]
  - Abdominal distension [Not Recovered/Not Resolved]
  - Dizziness [Recovered/Resolved]
  - Headache [Recovered/Resolved]
  - Drug ineffective [Unknown]
  - Sluggishness [Not Recovered/Not Resolved]
  - Arrhythmia [Unknown]
  - Drug effect incomplete [Unknown]
  - Chronic gastritis [Not Recovered/Not Resolved]
  - Nausea [Recovered/Resolved]
  - Insomnia [None]
  - Atrial fibrillation [Unknown]
  - Malaise [Recovered/Resolved]
  - Pain in extremity [Not Recovered/Not Resolved]

NARRATIVE: CASE EVENT DATE: 201412
